FAERS Safety Report 20081436 (Version 2)
Quarter: 2021Q4

REPORT INFORMATION
  Report Type: Spontaneous
  Country: GB (occurrence: GB)
  Receive Date: 20211117
  Receipt Date: 20211124
  Transmission Date: 20220303
  Serious: Yes (Other)
  Sender: FDA-Public Use
  Company Number: GB-002147023-NVSC2021GB250052

PATIENT
  Sex: Male

DRUGS (2)
  1. BISOPROLOL FUMARATE [Suspect]
     Active Substance: BISOPROLOL FUMARATE
     Indication: Hypertension
     Dosage: 1.25 MILLIGRAM DAILY;  (TAKING THIS MEDICATION FOR LESS THAN 1 MONTH)
     Route: 065
  2. BISOPROLOL FUMARATE [Suspect]
     Active Substance: BISOPROLOL FUMARATE
     Dosage: 2 DOSAGE FORMS DAILY; 2 DF, QD
     Route: 065

REACTIONS (3)
  - Angina pectoris [Unknown]
  - Incorrect dose administered [Unknown]
  - Product dose omission issue [Unknown]
